FAERS Safety Report 21117042 (Version 1)
Quarter: 2022Q3

REPORT INFORMATION
  Report Type: Spontaneous
  Country: US (occurrence: US)
  Receive Date: 20220722
  Receipt Date: 20220722
  Transmission Date: 20221027
  Serious: Yes (Other)
  Sender: FDA-Public Use
  Company Number: US-STRIDES ARCOLAB LIMITED-2022SP009163

PATIENT
  Age: 12 Year
  Sex: Male
  Weight: 30 kg

DRUGS (8)
  1. PREDNISOLONE [Suspect]
     Active Substance: PREDNISOLONE
     Indication: Uveitis
     Dosage: 30 MILLIGRAM PER DAY
     Route: 048
  2. PREDNISOLONE [Suspect]
     Active Substance: PREDNISOLONE
     Dosage: 1 MILLIGRAM PER DAY, TAPERED GRADUALLY TO 1 MG DAILY OVER THE PERIOD OF 2 YEARS
     Route: 048
  3. INFLIXIMAB [Suspect]
     Active Substance: INFLIXIMAB
     Indication: Uveitis
     Dosage: 5 MILLIGRAM/KILOGRAM, ONCE A MONTH, INFUSION
     Route: 065
  4. METHYLPREDNISOLONE SODIUM SUCCINATE [Suspect]
     Active Substance: METHYLPREDNISOLONE SODIUM SUCCINATE
     Indication: Uveitis
     Dosage: 750 MILLIGRAM, ONCE A MONTH, 3 CONSECUTIVE DAYS MONTHLY, INFUSION
     Route: 042
  5. METHYLPREDNISOLONE SODIUM SUCCINATE [Suspect]
     Active Substance: METHYLPREDNISOLONE SODIUM SUCCINATE
     Dosage: 750 MILLIGRAM, ONCE A MONTH
     Route: 042
  6. METHYLPREDNISOLONE SODIUM SUCCINATE [Suspect]
     Active Substance: METHYLPREDNISOLONE SODIUM SUCCINATE
     Dosage: 500 MILLIGRAM, ONCE A MONTH, AFTER AN ADDITIONAL 10 MONTHS, IT WAS FURTHER REDUCED TO 500 MG MONTHLY
     Route: 042
  7. DIFLUPREDNATE [Suspect]
     Active Substance: DIFLUPREDNATE
     Indication: Uveitis
     Dosage: UNK
     Route: 061
  8. DIFLUPREDNATE [Suspect]
     Active Substance: DIFLUPREDNATE
     Dosage: UNK (TAPERED GRADUALLY)
     Route: 061

REACTIONS (14)
  - Leukopenia [Recovered/Resolved]
  - Haematology test abnormal [Recovered/Resolved]
  - Retinal vasculitis [Unknown]
  - Fatigue [Recovered/Resolved]
  - Granulocytosis [Recovered/Resolved]
  - Red blood cell count abnormal [Recovered/Resolved]
  - Hepatic enzyme increased [Recovered/Resolved]
  - Aspartate aminotransferase increased [Recovered/Resolved]
  - Blood alkaline phosphatase increased [Recovered/Resolved]
  - Blood creatine phosphokinase increased [Recovered/Resolved]
  - Blood lactate dehydrogenase increased [Recovered/Resolved]
  - Blood glucose increased [Recovered/Resolved]
  - Weight increased [Unknown]
  - Asthenia [Recovered/Resolved]
